FAERS Safety Report 21670544 (Version 2)
Quarter: 2022Q4

REPORT INFORMATION
  Report Type: Report from Study
  Country: TW (occurrence: TW)
  Receive Date: 20221201
  Receipt Date: 20221213
  Transmission Date: 20230112
  Serious: Yes (Death, Other)
  Sender: FDA-Public Use
  Company Number: TW-002147023-NVSC2022TW108223

PATIENT
  Age: 55 Year
  Sex: Female
  Weight: 71.5 kg

DRUGS (1)
  1. CAPMATINIB [Suspect]
     Active Substance: CAPMATINIB
     Indication: Product used for unknown indication
     Dosage: 400 MG, BID (200 MG X 2)
     Route: 048
     Dates: start: 20220211, end: 20221123

REACTIONS (10)
  - Tumour haemorrhage [Fatal]
  - Brain oedema [Fatal]
  - Coma [Fatal]
  - Dyspnoea [Fatal]
  - Metastases to central nervous system [Unknown]
  - Hydrocephalus [Unknown]
  - Eastern Cooperative Oncology Group performance status worsened [Unknown]
  - White blood cell count increased [Unknown]
  - Alanine aminotransferase decreased [Unknown]
  - Blood albumin decreased [Unknown]

NARRATIVE: CASE EVENT DATE: 20221124
